FAERS Safety Report 7465480-6 (Version None)
Quarter: 2011Q2

REPORT INFORMATION
  Report Type: 
  Country: None (occurrence: None)
  Receive Date: 20110509
  Receipt Date: 20101020
  Transmission Date: 20111010
  Serious: No
  Sender: FDA-Public Use
  Company Number: US-SANOFI-AVENTIS-2010SA064406

PATIENT
  Age: 34 Year
  Sex: Male

DRUGS (2)
  1. LANTUS [Suspect]
     Dates: start: 20101015, end: 20101019
  2. APIDRA [Suspect]
     Dosage: SLIDING SCALE WITH MEALS
     Route: 058
     Dates: start: 20101015, end: 20101019

REACTIONS (2)
  - VISION BLURRED [None]
  - BLOOD GLUCOSE INCREASED [None]
